FAERS Safety Report 5845421-5 (Version None)
Quarter: 2008Q3

REPORT INFORMATION
  Report Type: 
  Country: None (occurrence: None)
  Receive Date: 20080814
  Receipt Date: 20080808
  Transmission Date: 20090109
  Serious: Yes (Death, Other)
  Sender: FDA-Public Use
  Company Number: US-PURDUE-USA_2008_0034055

PATIENT
  Age: 55 Year
  Sex: Female

DRUGS (1)
  1. OXYCONTIN [Suspect]
     Indication: BREAST CANCER
     Dosage: UNK MG, UNK
     Route: 048

REACTIONS (4)
  - BREAST CANCER [None]
  - DRUG DEPENDENCE [None]
  - OVERDOSE [None]
  - RESPIRATORY ARREST [None]
